FAERS Safety Report 10947951 (Version 2)
Quarter: 2015Q2

REPORT INFORMATION
  Report Type: Spontaneous
  Country: DE (occurrence: DE)
  Receive Date: 20150324
  Receipt Date: 20150518
  Transmission Date: 20150821
  Serious: Yes (Hospitalization)
  Sender: FDA-Public Use
  Company Number: DE-ROCHE-1555109

PATIENT
  Age: 51 Year
  Sex: Female

DRUGS (4)
  1. FLUCLOXACILLIN [Concomitant]
     Active Substance: FLUCLOXACILLIN
  2. MABTHERA [Suspect]
     Active Substance: RITUXIMAB
     Indication: GRANULOMATOSIS WITH POLYANGIITIS
     Dosage: 3 ADMINISTRATIONS ON 19/MAR/2014, 25/MAR/2014, 02/APR/2014 AND 09/APR/2014.
     Route: 042
     Dates: start: 20140319, end: 20140402
  3. MABTHERA [Suspect]
     Active Substance: RITUXIMAB
     Dosage: FOURTH DOSE.
     Route: 042
     Dates: start: 20140409
  4. CEFACLOR. [Concomitant]
     Active Substance: CEFACLOR

REACTIONS (3)
  - Alopecia [Recovered/Resolved]
  - Stevens-Johnson syndrome [Recovered/Resolved]
  - Epidermolysis [Recovered/Resolved]

NARRATIVE: CASE EVENT DATE: 201404
